FAERS Safety Report 5532397-3 (Version None)
Quarter: 2007Q4

REPORT INFORMATION
  Report Type: 
  Country: None (occurrence: None)
  Receive Date: 20071203
  Receipt Date: 20071126
  Transmission Date: 20080405
  Serious: Yes (Other)
  Sender: FDA-Public Use
  Company Number: GB-PFIZER INC-2006127934

PATIENT
  Sex: Male
  Weight: 99.8 kg

DRUGS (6)
  1. SU-011,248 [Suspect]
     Indication: RENAL CELL CARCINOMA STAGE UNSPECIFIED
     Route: 048
  2. ZOLEDRONIC ACID [Suspect]
     Route: 042
  3. LANSOPRAZOLE [Concomitant]
     Dates: start: 20060726
  4. ALL OTHER THERAPEUTIC PRODUCTS [Concomitant]
     Dates: start: 20060726
  5. ALL OTHER THERAPEUTIC PRODUCTS [Concomitant]
     Dates: start: 20060727
  6. EUMOVATE [Concomitant]
     Dates: start: 20060831

REACTIONS (1)
  - OSTEONECROSIS [None]
